FAERS Safety Report 11181443 (Version 2)
Quarter: 2015Q3

REPORT INFORMATION
  Report Type: Spontaneous
  Country: US (occurrence: US)
  Receive Date: 20150611
  Receipt Date: 20150914
  Transmission Date: 20151125
  Serious: No
  Sender: FDA-Public Use
  Company Number: US-ASTELLAS-2015US012220

PATIENT
  Age: 62 Year
  Sex: Male

DRUGS (1)
  1. XTANDI [Suspect]
     Active Substance: ENZALUTAMIDE
     Indication: PROSTATE CANCER
     Dosage: 4 CAPSULES,160 MG, ONCE A DAY
     Route: 048
     Dates: start: 20150313

REACTIONS (5)
  - Pain [Recovering/Resolving]
  - Insomnia [Recovering/Resolving]
  - Abdominal distension [Recovering/Resolving]
  - Nausea [Unknown]
  - Muscle spasms [Recovering/Resolving]

NARRATIVE: CASE EVENT DATE: 20150413
